FAERS Safety Report 20790265 (Version 2)
Quarter: 2022Q2

REPORT INFORMATION
  Report Type: Spontaneous
  Country: CN (occurrence: CN)
  Receive Date: 20220505
  Receipt Date: 20220525
  Transmission Date: 20220721
  Serious: Yes (Other)
  Sender: FDA-Public Use
  Company Number: CN-ELI_LILLY_AND_COMPANY-CN202204011077

PATIENT
  Age: 55 Year
  Sex: Male

DRUGS (1)
  1. TRULICITY [Suspect]
     Active Substance: DULAGLUTIDE
     Indication: Type 2 diabetes mellitus
     Dosage: 1.5 MG, DAILY
     Route: 058
     Dates: start: 202204

REACTIONS (3)
  - Haematemesis [Recovered/Resolved]
  - Overdose [Unknown]
  - Inappropriate schedule of product administration [Unknown]

NARRATIVE: CASE EVENT DATE: 20220401
